FAERS Safety Report 24073920 (Version 1)
Quarter: 2024Q3

REPORT INFORMATION
  Report Type: Report from Study
  Country: CA (occurrence: CA)
  Receive Date: 20240710
  Receipt Date: 20240710
  Transmission Date: 20241017
  Serious: Yes (Hospitalization, Other)
  Sender: PIERRE FABRE MEDICAMENT
  Company Number: CA-PFM-2021-02976

PATIENT
  Age: 12 Year
  Sex: Male

DRUGS (23)
  1. PROPRANOLOL HYDROCHLORIDE [Suspect]
     Active Substance: PROPRANOLOL HYDROCHLORIDE
     Indication: Tremor
     Dosage: UNK, BID (2/DAY)
     Route: 048
  2. PROPRANOLOL HYDROCHLORIDE [Suspect]
     Active Substance: PROPRANOLOL HYDROCHLORIDE
     Indication: Off label use
     Dosage: 15 MG, BID (2/DAY)
     Route: 048
  3. RISPERIDONE [Suspect]
     Active Substance: RISPERIDONE
     Indication: Product used for unknown indication
     Dosage: UNK
     Route: 065
  4. SANDOSTATIN LAR DEPOT [Suspect]
     Active Substance: OCTREOTIDE ACETATE
     Indication: Growth hormone-producing pituitary tumour
     Dosage: 30 MG, MONTHLY
     Route: 030
  5. SANDOSTATIN LAR DEPOT [Suspect]
     Active Substance: OCTREOTIDE ACETATE
     Dosage: 20 MG, MONTHLY
     Route: 030
  6. SANDOSTATIN LAR DEPOT [Suspect]
     Active Substance: OCTREOTIDE ACETATE
     Dosage: UNK
     Route: 030
  7. SANDOSTATIN LAR DEPOT [Suspect]
     Active Substance: OCTREOTIDE ACETATE
     Indication: Growth hormone-producing pituitary tumour
     Dosage: 20 MG, MONTHLY
     Route: 030
     Dates: start: 201810, end: 201902
  8. SERTRALINE [Suspect]
     Active Substance: SERTRALINE HYDROCHLORIDE
     Indication: Product used for unknown indication
     Dosage: UNK
     Route: 065
  9. SOMAVERT [Suspect]
     Active Substance: PEGVISOMANT
     Indication: Pituitary tumour
     Dosage: 15 MG, QD (1/DAY)
     Route: 065
     Dates: start: 201301
  10. SOMAVERT [Suspect]
     Active Substance: PEGVISOMANT
     Indication: Blood growth hormone
     Dosage: 30 MG, WEEKLY
     Route: 065
  11. SOMAVERT [Suspect]
     Active Substance: PEGVISOMANT
     Indication: Pituitary tumour
     Dosage: 15 MG, QD (1/DAY)
     Route: 065
  12. SOMAVERT [Suspect]
     Active Substance: PEGVISOMANT
     Indication: Blood growth hormone
  13. ATOMOXETINE [Concomitant]
     Active Substance: ATOMOXETINE HYDROCHLORIDE
     Indication: Product used for unknown indication
     Dosage: UNK
     Route: 065
  14. CARBAMAZEPINE [Concomitant]
     Active Substance: CARBAMAZEPINE
     Indication: Product used for unknown indication
     Dosage: UNK
     Route: 065
  15. HYDROCORTISONE ACETATE [Concomitant]
     Active Substance: HYDROCORTISONE ACETATE
     Indication: Product used for unknown indication
     Dosage: UNK
     Route: 065
  16. MELATONIN [Concomitant]
     Active Substance: MELATONIN
     Indication: Product used for unknown indication
     Dosage: UNK
     Route: 065
  17. PEG 3350 [Concomitant]
     Active Substance: POLYETHYLENE GLYCOL 3350
     Indication: Constipation
     Dosage: UNK, QD (1/DAY)
     Route: 065
  18. PEGVISOMANT [Concomitant]
     Active Substance: PEGVISOMANT
     Indication: Product used for unknown indication
     Dosage: UNK
     Route: 065
  19. PRIMIDONE [Concomitant]
     Active Substance: PRIMIDONE
     Indication: Product used for unknown indication
     Dosage: 50 MG, BID (2/DAY)
     Route: 065
     Dates: start: 201805
  20. STRATTERA [Concomitant]
     Active Substance: ATOMOXETINE HYDROCHLORIDE
     Indication: Product used for unknown indication
     Dosage: UNK
     Route: 065
  21. SYNTHROID [Concomitant]
     Active Substance: LEVOTHYROXINE SODIUM
     Indication: Product used for unknown indication
     Dosage: UNK
     Route: 065
  22. TESTOSTERONE [Concomitant]
     Active Substance: TESTOSTERONE
     Indication: Product used for unknown indication
     Dosage: UNK
     Route: 065
  23. UNSPECIFIED INGREDIENT [Concomitant]
     Active Substance: UNSPECIFIED INGREDIENT
     Indication: Product used for unknown indication
     Dosage: UNK
     Route: 065

REACTIONS (44)
  - Brain injury [Recovered/Resolved]
  - Growth hormone-producing pituitary tumour [Recovered/Resolved]
  - Hepatotoxicity [Recovered/Resolved]
  - Helicobacter infection [Recovered/Resolved]
  - Seizure [Recovered/Resolved]
  - Shunt occlusion [Recovered/Resolved]
  - Shunt malfunction [Recovered/Resolved]
  - Blood growth hormone increased [Recovered/Resolved]
  - Chest pain [Recovered/Resolved]
  - Contusion [Recovered/Resolved]
  - Hepatic enzyme increased [Recovered/Resolved]
  - Device malfunction [Recovered/Resolved]
  - Eructation [Recovered/Resolved]
  - Gait disturbance [Recovered/Resolved]
  - Foot deformity [Recovered/Resolved]
  - Infrequent bowel movements [Recovered/Resolved]
  - Eye movement disorder [Recovered/Resolved]
  - Insulin-like growth factor increased [Recovered/Resolved]
  - Gastric hypomotility [Recovered/Resolved]
  - Strabismus [Recovered/Resolved]
  - Influenza [Recovered/Resolved]
  - Breath odour [Recovered/Resolved]
  - Obsessive-compulsive disorder [Recovered/Resolved]
  - Neoplasm progression [Recovered/Resolved]
  - Needle issue [Recovered/Resolved]
  - Injection site haemorrhage [Recovered/Resolved]
  - Injection site pain [Recovered/Resolved]
  - Swelling [Recovered/Resolved]
  - Viral diarrhoea [Recovered/Resolved]
  - Tremor [Recovered/Resolved]
  - Fall [Recovered/Resolved]
  - Agitation [Recovered/Resolved]
  - Abdominal pain [Recovered/Resolved]
  - Constipation [Recovered/Resolved]
  - Cough [Recovered/Resolved]
  - Diarrhoea [Recovered/Resolved]
  - Nausea [Recovered/Resolved]
  - Pyrexia [Recovered/Resolved]
  - Vomiting [Recovered/Resolved]
  - Stress [Recovered/Resolved]
  - Product use issue [Unknown]
  - Product use in unapproved indication [Unknown]
  - Product use issue [Unknown]
  - Off label use [Unknown]

NARRATIVE: CASE EVENT DATE: 20111028
